FAERS Safety Report 22297364 (Version 2)
Quarter: 2023Q2

REPORT INFORMATION
  Report Type: Spontaneous
  Country: US (occurrence: US)
  Receive Date: 20230509
  Receipt Date: 20230516
  Transmission Date: 20230721
  Serious: Yes (Hospitalization, Other)
  Sender: FDA-Public Use
  Company Number: US-009507513-2305USA001344

PATIENT
  Age: 82 Year
  Sex: Female
  Weight: 59.864 kg

DRUGS (11)
  1. VERQUVO [Suspect]
     Active Substance: VERICIGUAT
     Indication: Cardiac failure congestive
     Dosage: 10 MG/ONCE DAILY
     Route: 048
     Dates: start: 20230207, end: 20230502
  2. ENTRESTO [Concomitant]
     Active Substance: SACUBITRIL\VALSARTAN
  3. CLOPIDOGREL [Concomitant]
     Active Substance: CLOPIDOGREL BISULFATE
  4. ASPIRIN [Concomitant]
     Active Substance: ASPIRIN
  5. SYNTHROID [Concomitant]
     Active Substance: LEVOTHYROXINE SODIUM
  6. CARAZOLOL [Concomitant]
  7. NEXLETOL [Concomitant]
     Active Substance: BEMPEDOIC ACID
  8. CITRULLINE [Concomitant]
     Active Substance: CITRULLINE
  9. TEMAZEPAM [Concomitant]
     Active Substance: TEMAZEPAM
  10. TOCAINIDE [Concomitant]
     Active Substance: TOCAINIDE
  11. XANAX [Concomitant]
     Active Substance: ALPRAZOLAM

REACTIONS (2)
  - Anaemia [Recovering/Resolving]
  - Product prescribing issue [Unknown]

NARRATIVE: CASE EVENT DATE: 20230502
